FAERS Safety Report 6260742-2 (Version None)
Quarter: 2009Q3

REPORT INFORMATION
  Report Type: 
  Country: None (occurrence: None)
  Receive Date: 20090708
  Receipt Date: 20090702
  Transmission Date: 20100115
  Serious: Yes (Hospitalization)
  Sender: FDA-Public Use
  Company Number: FR-MERCK-0907FRA00003

PATIENT
  Age: 36 Year
  Sex: Male

DRUGS (12)
  1. PRINIVIL [Suspect]
     Route: 048
     Dates: end: 20080101
  2. RITUXIMAB [Suspect]
     Indication: NEPHRITIC SYNDROME
     Route: 042
     Dates: start: 20080101, end: 20080101
  3. RITUXIMAB [Suspect]
     Route: 042
     Dates: start: 20070201, end: 20070201
  4. MYCOPHENOLATE MOFETIL [Suspect]
     Indication: NEPHRITIC SYNDROME
     Route: 048
     Dates: start: 20080101, end: 20080801
  5. HYDROCHLOROTHIAZIDE [Suspect]
     Route: 048
  6. URAPIDIL [Suspect]
     Route: 048
  7. OMEPRAZOLE [Suspect]
     Route: 048
  8. PENTOXIFYLLINE [Suspect]
     Route: 048
  9. CALCIFEDIOL [Suspect]
     Route: 048
  10. CALCIUM CARBONATE [Suspect]
     Route: 048
  11. PRAZOSIN HYDROCHLORIDE [Suspect]
     Route: 048
  12. ALLOPURINOL [Suspect]
     Route: 048

REACTIONS (1)
  - SARCOIDOSIS [None]
